FAERS Safety Report 12115583 (Version 1)
Quarter: 2016Q1

REPORT INFORMATION
  Report Type: Spontaneous
  Country: US (occurrence: US)
  Receive Date: 20160225
  Receipt Date: 20160225
  Transmission Date: 20160526
  Serious: Yes (Other)
  Sender: FDA-Public Use
  Company Number: US-LPDUSPRD-20160146

PATIENT
  Age: 39 Year
  Sex: Male

DRUGS (1)
  1. PHENYTOIN SODIUM INJECTION (40042-009-02) [Suspect]
     Active Substance: PHENYTOIN SODIUM
     Dosage: 400 MG DAILY
     Route: 065

REACTIONS (1)
  - Pulmonary vasculitis [Unknown]
